FAERS Safety Report 19260890 (Version 1)
Quarter: 2021Q2

REPORT INFORMATION
  Report Type: Spontaneous
  Country: RU (occurrence: RU)
  Receive Date: 20210515
  Receipt Date: 20210515
  Transmission Date: 20210717
  Serious: Yes (Hospitalization)
  Sender: FDA-Public Use
  Company Number: RU-JNJFOC-20210519703

PATIENT
  Age: 53 Year
  Sex: Female
  Weight: 53 kg

DRUGS (3)
  1. XARELTO [Suspect]
     Active Substance: RIVAROXABAN
     Indication: SUICIDE ATTEMPT
     Dosage: UNK
     Route: 048
     Dates: start: 20210425, end: 20210425
  2. SOTALOL. [Suspect]
     Active Substance: SOTALOL
     Dosage: UNK
     Route: 048
     Dates: start: 20210425, end: 20210425
  3. PERINDOPRIL [Suspect]
     Active Substance: PERINDOPRIL
     Dosage: UNK
     Route: 048
     Dates: start: 20210425, end: 20210425

REACTIONS (3)
  - Asthenia [Recovered/Resolved]
  - Dizziness [Recovered/Resolved]
  - Lethargy [Recovered/Resolved]

NARRATIVE: CASE EVENT DATE: 20210425
